FAERS Safety Report 23826323 (Version 1)
Quarter: 2024Q2

REPORT INFORMATION
  Report Type: Spontaneous
  Country: US (occurrence: US)
  Receive Date: 20240507
  Receipt Date: 20240507
  Transmission Date: 20240715
  Serious: No
  Sender: FDA-Public Use
  Company Number: US-UCBSA-2024001564

PATIENT
  Sex: Female

DRUGS (10)
  1. CIMZIA [Suspect]
     Active Substance: CERTOLIZUMAB PEGOL
     Indication: Psoriasis
     Dosage: 200 MILLIGRAM, EV 2 WEEKS(QOW)
     Route: 058
  2. ENBREL [Suspect]
     Active Substance: BENZYL ALCOHOL\ETANERCEPT
     Indication: Product used for unknown indication
     Dosage: UNK
  3. HUMIRA [Suspect]
     Active Substance: ADALIMUMAB
     Indication: Product used for unknown indication
     Dosage: UNK
  4. TILDRAKIZUMAB [Suspect]
     Active Substance: TILDRAKIZUMAB
     Indication: Product used for unknown indication
     Dosage: UNK
  5. METHOTREXATE [Suspect]
     Active Substance: METHOTREXATE
     Indication: Product used for unknown indication
     Dosage: UNK
  6. STELARA [Suspect]
     Active Substance: USTEKINUMAB
     Indication: Product used for unknown indication
     Dosage: UNK
  7. OTEZLA [Suspect]
     Active Substance: APREMILAST
     Indication: Product used for unknown indication
     Dosage: UNK
  8. BIMZELX [Concomitant]
     Active Substance: BIMEKIZUMAB-BKZX
     Indication: Product used for unknown indication
     Dosage: UNK
  9. SOTYKTU [Concomitant]
     Active Substance: DEUCRAVACITINIB
     Indication: Product used for unknown indication
     Dosage: UNK
  10. CALCIPOTRIENE [Concomitant]
     Active Substance: CALCIPOTRIENE
     Indication: Product used for unknown indication
     Dosage: 0.005 % SOLUTION

REACTIONS (4)
  - Drug intolerance [Unknown]
  - Contraindication to medical treatment [Unknown]
  - Drug hypersensitivity [Unknown]
  - Treatment failure [Unknown]
